FAERS Safety Report 7376160-X (Version None)
Quarter: 2011Q1

REPORT INFORMATION
  Report Type: 
  Country: None (occurrence: None)
  Receive Date: 20110325
  Receipt Date: 20110311
  Transmission Date: 20110831
  Serious: Yes (Hospitalization)
  Sender: FDA-Public Use
  Company Number: US-JNJFOC-20110303319

PATIENT
  Sex: Female
  Weight: 108.86 kg

DRUGS (17)
  1. ADVAIR DISKUS 100/50 [Concomitant]
     Indication: ASTHMA
     Route: 055
  2. PROAIR HFA [Concomitant]
     Indication: ASTHMA
     Route: 055
  3. ZETIA [Concomitant]
     Indication: BLOOD CHOLESTEROL INCREASED
     Route: 048
  4. REMICADE [Suspect]
     Route: 042
  5. AMANTADINE HCL [Concomitant]
     Indication: RESTLESS LEGS SYNDROME
     Route: 048
  6. GABAPENTIN [Concomitant]
     Indication: NEURALGIA
     Route: 048
  7. ENALAPRIL MALEATE [Concomitant]
     Indication: HYPERTENSION
     Route: 048
  8. REMICADE [Suspect]
     Indication: RHEUMATOID ARTHRITIS
     Route: 042
  9. CITALOPRAM [Concomitant]
     Indication: DEPRESSION
     Route: 048
  10. OMEPRAZOLE [Concomitant]
     Indication: GASTROOESOPHAGEAL REFLUX DISEASE
     Route: 048
  11. IBUPROFEN [Concomitant]
     Indication: ARTHRITIS
     Route: 048
  12. SINGULAIR [Concomitant]
     Indication: SINUS DISORDER
     Route: 048
  13. SINGULAIR [Concomitant]
     Indication: ASTHMA
     Route: 048
  14. INSULIN HUMULIN [Concomitant]
     Indication: DIABETES MELLITUS
     Route: 058
  15. LEVOTHYROXINE SODIUM [Concomitant]
     Indication: HYPOTHYROIDISM
     Route: 048
  16. VITAMIN D [Concomitant]
     Indication: VITAMIN D DEFICIENCY
     Route: 048
  17. ALLEGRA [Concomitant]
     Indication: PRURITUS
     Route: 048

REACTIONS (4)
  - SINUSITIS [None]
  - BRONCHITIS [None]
  - URINARY TRACT INFECTION [None]
  - MENINGITIS [None]
